FAERS Safety Report 10061725 (Version 1)
Quarter: 2014Q2

REPORT INFORMATION
  Report Type: Spontaneous
  Country: US (occurrence: None)
  Receive Date: 20140404
  Receipt Date: 20140404
  Transmission Date: 20141212
  Serious: Yes (Other)
  Sender: FDA-Public Use
  Company Number: None

PATIENT
  Age: 39 Year
  Sex: Male
  Weight: 65.77 kg

DRUGS (1)
  1. NASACORT [Suspect]
     Indication: MULTIPLE ALLERGIES
     Dosage: 2 SPRAYS ONCE DAILY NASAL
     Route: 045
     Dates: start: 20140401, end: 20140402

REACTIONS (1)
  - Insomnia [None]
